FAERS Safety Report 7114161-7 (Version None)
Quarter: 2010Q4

REPORT INFORMATION
  Report Type: 
  Country: None (occurrence: None)
  Receive Date: 20101119
  Receipt Date: 20101110
  Transmission Date: 20110411
  Serious: Yes (Other)
  Sender: FDA-Public Use
  Company Number: US-SANOFI-AVENTIS-2010SA041888

PATIENT
  Sex: Male

DRUGS (3)
  1. SOLOSTAR [Suspect]
  2. SOLOSTAR [Suspect]
     Route: 058
  3. LANTUS SOLOSTAR [Suspect]

REACTIONS (5)
  - DEVICE BREAKAGE [None]
  - DEVICE MALFUNCTION [None]
  - NEEDLE ISSUE [None]
  - PRODUCT QUALITY ISSUE [None]
  - WRONG TECHNIQUE IN DRUG USAGE PROCESS [None]
